FAERS Safety Report 12808912 (Version 1)
Quarter: 2016Q4

REPORT INFORMATION
  Report Type: Spontaneous
  Country: US (occurrence: US)
  Receive Date: 20161004
  Receipt Date: 20161004
  Transmission Date: 20170207
  Serious: No
  Sender: FDA-Public Use
  Company Number: US-TEVA-698411USA

PATIENT
  Sex: Female

DRUGS (2)
  1. TREANDA [Suspect]
     Active Substance: BENDAMUSTINE HYDROCHLORIDE
     Indication: NON-HODGKIN^S LYMPHOMA
  2. RITUXAN [Concomitant]
     Active Substance: RITUXIMAB

REACTIONS (1)
  - Hypersensitivity [Unknown]
